FAERS Safety Report 5879557-X (Version None)
Quarter: 2008Q3

REPORT INFORMATION
  Report Type: 
  Country: None (occurrence: None)
  Receive Date: 20080912
  Receipt Date: 20080905
  Transmission Date: 20090109
  Serious: Yes (Hospitalization)
  Sender: FDA-Public Use
  Company Number: GB-JNJFOC-20080901337

PATIENT
  Age: 11 Year
  Sex: Male

DRUGS (2)
  1. ACETAMINOPHEN [Suspect]
  2. ACETAMINOPHEN [Suspect]
     Indication: NASOPHARYNGITIS
     Dosage: 500 MG ONCE EVERY 6-8 HOURS

REACTIONS (3)
  - METABOLIC ACIDOSIS [None]
  - RENAL IMPAIRMENT [None]
  - TRANSAMINASES INCREASED [None]
